FAERS Safety Report 5066039-0 (Version None)
Quarter: 2006Q3

REPORT INFORMATION
  Report Type: 
  Country: None (occurrence: None)
  Receive Date: 20060731
  Receipt Date: 20050609
  Transmission Date: 20061208
  Serious: No
  Sender: FDA-Public Use
  Company Number: US-AMGEN-US138069

PATIENT
  Age: 55 Year
  Sex: Female

DRUGS (2)
  1. KINERET [Suspect]
     Indication: RHEUMATOID ARTHRITIS
     Route: 065
     Dates: start: 20040801
  2. PREDNISONE [Concomitant]
     Route: 065

REACTIONS (2)
  - RASH [None]
  - RASH GENERALISED [None]
